FAERS Safety Report 21737440 (Version 2)
Quarter: 2022Q4

REPORT INFORMATION
  Report Type: Spontaneous
  Country: CH (occurrence: CH)
  Receive Date: 20221216
  Receipt Date: 20221228
  Transmission Date: 20230113
  Serious: Yes (Death, Life-Threatening, Hospitalization, Other)
  Sender: FDA-Public Use
  Company Number: None

PATIENT
  Age: 52 Year
  Sex: Male

DRUGS (8)
  1. MYCOPHENOLATE MOFETIL [Suspect]
     Active Substance: MYCOPHENOLATE MOFETIL
     Indication: Immunosuppressant drug therapy
     Dosage: 720 MILLIGRAM, BID, (EVERY 12 HOUR)
     Route: 065
  2. TACROLIMUS [Suspect]
     Active Substance: TACROLIMUS
     Indication: Immunosuppressant drug therapy
     Dosage: UNK
     Route: 065
     Dates: start: 2021
  3. TACROLIMUS [Suspect]
     Active Substance: TACROLIMUS
     Dosage: 3 MILLIGRAM, BID (EVERY 12 HOUR)
     Route: 065
     Dates: end: 2021
  4. TACROLIMUS [Suspect]
     Active Substance: TACROLIMUS
     Dosage: TROUGH LEVELS AT 5-7 UG/L
     Route: 065
  5. PREDNISOLONE [Suspect]
     Active Substance: PREDNISOLONE
     Indication: Immunosuppressant drug therapy
     Dosage: 5 MILLIGRAM
     Route: 065
     Dates: start: 2021
  6. PREDNISOLONE [Suspect]
     Active Substance: PREDNISOLONE
     Dosage: 12.5 MILLIGRAM, QD (EVERY 1 DAY)
     Route: 065
     Dates: end: 2021
  7. TOCILIZUMAB [Suspect]
     Active Substance: TOCILIZUMAB
     Indication: COVID-19
     Dosage: UNK
     Route: 065
  8. TOCILIZUMAB [Suspect]
     Active Substance: TOCILIZUMAB
     Indication: Acute respiratory distress syndrome

REACTIONS (7)
  - Acute kidney injury [Fatal]
  - Brain abscess [Fatal]
  - Endophthalmitis [Fatal]
  - Fungal endocarditis [Fatal]
  - Scedosporium infection [Fatal]
  - Septic embolus [Fatal]
  - Septic pulmonary embolism [Fatal]

NARRATIVE: CASE EVENT DATE: 20210101
